FAERS Safety Report 11031349 (Version 1)
Quarter: 2015Q2

REPORT INFORMATION
  Report Type: Spontaneous
  Country: US (occurrence: US)
  Receive Date: 20150415
  Receipt Date: 20150415
  Transmission Date: 20150821
  Serious: No
  Sender: FDA-Public Use
  Company Number: US-PFIZER INC-2015122762

PATIENT

DRUGS (2)
  1. LEVOXYL [Suspect]
     Active Substance: LEVOTHYROXINE SODIUM
     Dosage: UNK
  2. LEVOXYL [Suspect]
     Active Substance: LEVOTHYROXINE SODIUM
     Dosage: UNK
     Dates: start: 201410

REACTIONS (7)
  - Abdominal pain upper [Recovered/Resolved]
  - Dyspepsia [Unknown]
  - Heart rate increased [Unknown]
  - Blood pressure increased [Unknown]
  - Nausea [Unknown]
  - Anxiety [Unknown]
  - Intentional product misuse [Unknown]
